FAERS Safety Report 10385628 (Version 1)
Quarter: 2014Q3

REPORT INFORMATION
  Report Type: Spontaneous
  Country: US (occurrence: US)
  Receive Date: 20140814
  Receipt Date: 20140814
  Transmission Date: 20150326
  Serious: Yes (Other)
  Sender: FDA-Public Use
  Company Number: US-TEVA-500803USA

PATIENT
  Sex: Female

DRUGS (1)
  1. METOPROLOL [Suspect]
     Active Substance: METOPROLOL
     Indication: PRODUCT USED FOR UNKNOWN INDICATION
     Dosage: 25 MILLIGRAM DAILY;
     Route: 048

REACTIONS (5)
  - Gastrooesophageal reflux disease [Unknown]
  - Atrial fibrillation [Unknown]
  - Gastrointestinal disorder [Unknown]
  - Palpitations [Unknown]
  - Abdominal discomfort [Unknown]
